FAERS Safety Report 18311967 (Version 1)
Quarter: 2020Q3

REPORT INFORMATION
  Report Type: Spontaneous
  Country: SE (occurrence: SE)
  Receive Date: 20200925
  Receipt Date: 20200925
  Transmission Date: 20201103
  Serious: Yes (Other)
  Sender: FDA-Public Use
  Company Number: NVSC2020SE255769

PATIENT
  Age: 92 Year
  Sex: Female

DRUGS (5)
  1. QUININE [Suspect]
     Active Substance: QUININE
     Indication: MUSCLE SPASMS
     Dosage: UNK UNK, QD (1 TABLET PER DAY)
     Route: 065
  2. ESTROGEN [Suspect]
     Active Substance: ESTROGENS
     Indication: PRODUCT USED FOR UNKNOWN INDICATION
     Dosage: UNK UNK, QD (1 TABLET PER DAY)
     Route: 065
  3. BETMIGA [Suspect]
     Active Substance: MIRABEGRON
     Indication: DISCHARGE
     Dosage: 50 MG, QD (25 MG, BID)
     Route: 065
  4. METOPROLOL SANDOZ [Suspect]
     Active Substance: METOPROLOL
     Indication: PRODUCT USED FOR UNKNOWN INDICATION
     Dosage: 25 MG, QD
     Route: 065
  5. OVESTERIN [Suspect]
     Active Substance: ESTRIOL
     Indication: DISCHARGE
     Dosage: UNK
     Route: 065

REACTIONS (3)
  - Breast cancer [Recovered/Resolved]
  - Skin discolouration [Not Recovered/Not Resolved]
  - Amnesia [Not Recovered/Not Resolved]

NARRATIVE: CASE EVENT DATE: 201910
